FAERS Safety Report 7532400-5 (Version None)
Quarter: 2011Q2

REPORT INFORMATION
  Report Type: 
  Country: None (occurrence: None)
  Receive Date: 20110608
  Receipt Date: 20110602
  Transmission Date: 20111010
  Serious: Yes (Hospitalization, Other)
  Sender: FDA-Public Use
  Company Number: ES-ABBOTT-11P-144-0729779-00

PATIENT
  Age: 53 Year
  Sex: Female

DRUGS (2)
  1. ADALIMUMAB [Suspect]
  2. ADALIMUMAB [Suspect]
     Indication: CROHN'S DISEASE
     Dosage: INDUCTION DOSE 80/40 MG
     Route: 050

REACTIONS (4)
  - CNS VENTRICULITIS [None]
  - HYDROCEPHALUS [None]
  - TUBERCULOSIS [None]
  - MENINGITIS TUBERCULOUS [None]
